FAERS Safety Report 8117766-X (Version None)
Quarter: 2011Q4

REPORT INFORMATION
  Report Type: 
  Country: None (occurrence: None)
  Receive Date: 20111227
  Receipt Date: 20111115
  Transmission Date: 20120403
  Serious: No
  Sender: FDA-Public Use
  Company Number: PHEH2011US07661

PATIENT
  Age: 41 Year
  Sex: Female

DRUGS (2)
  1. GILENYA [Suspect]
     Indication: MULTIPLE SCLEROSIS
     Dosage: 0.5 MG, QD, ORAL
     Route: 048
     Dates: start: 20110810
  2. CALCIPOTRIENE (CALCIPOTRIOL) [Concomitant]

REACTIONS (4)
  - EAR PAIN [None]
  - BLOOD PRESSURE DIASTOLIC INCREASED [None]
  - SKIN EXFOLIATION [None]
  - CONDITION AGGRAVATED [None]
